FAERS Safety Report 15868026 (Version 3)
Quarter: 2019Q2

REPORT INFORMATION
  Report Type: Spontaneous
  Country: FR (occurrence: FR)
  Receive Date: 20190125
  Receipt Date: 20190411
  Transmission Date: 20190711
  Serious: No
  Sender: FDA-Public Use
  Company Number: FR-PFIZER INC-2019030883

PATIENT
  Age: 32 Year
  Sex: Female

DRUGS (5)
  1. DOLUTEGRAVIR [Concomitant]
     Active Substance: DOLUTEGRAVIR
     Indication: HIV INFECTION
     Dosage: UNK
  2. DOLUTEGRAVIR [Concomitant]
     Active Substance: DOLUTEGRAVIR
     Indication: MENINGITIS CRYPTOCOCCAL
  3. ABACAVIR/LAMIVUDINE [Concomitant]
     Indication: HIV INFECTION
  4. ABACAVIR/LAMIVUDINE [Concomitant]
     Indication: MENINGITIS CRYPTOCOCCAL
     Dosage: UNK
  5. FLUCONAZOLE. [Suspect]
     Active Substance: FLUCONAZOLE
     Dosage: UNK

REACTIONS (1)
  - Prescription drug used without a prescription [Unknown]
